FAERS Safety Report 16719847 (Version 1)
Quarter: 2019Q3

REPORT INFORMATION
  Report Type: Report from Study
  Country: US (occurrence: US)
  Receive Date: 20190820
  Receipt Date: 20190820
  Transmission Date: 20191005
  Serious: Yes (Other)
  Sender: FDA-Public Use
  Company Number: US-UCBSA-2019034420

PATIENT
  Age: 66 Year
  Sex: Female

DRUGS (2)
  1. CERTOLIZUMAB PEGOL [Suspect]
     Active Substance: CERTOLIZUMAB PEGOL
     Indication: CROHN^S DISEASE
     Dosage: 400 MILLIGRAM, MONTHLY (QM)
     Dates: start: 20110801
  2. TYMLOS [Concomitant]
     Active Substance: ABALOPARATIDE
     Indication: OSTEOPOROSIS

REACTIONS (1)
  - Breast cancer [Not Recovered/Not Resolved]

NARRATIVE: CASE EVENT DATE: 20160101
